FAERS Safety Report 5049946-4 (Version None)
Quarter: 2006Q3

REPORT INFORMATION
  Report Type: 
  Country: None (occurrence: None)
  Receive Date: 20060706
  Receipt Date: 20060627
  Transmission Date: 20061208
  Serious: Yes (Other)
  Sender: FDA-Public Use
  Company Number: 226306

PATIENT
  Age: 40 Year
  Sex: Female

DRUGS (5)
  1. XOLAIR [Suspect]
     Indication: ASTHMA
     Dosage: 150 MG, 1/MONTH,
     Dates: start: 20060412
  2. PROVENTIL (ALBUTEROL/ALBUTEROL SULFATE) [Concomitant]
  3. ADVAIR DISKUS 100/50 [Concomitant]
  4. ALLEGRA-D (FEXOFENADINE HYDROCHLORIDE, PSEUDOEPHEDRINE HYDROCHLORIDE) [Concomitant]
  5. PREVACID [Concomitant]

REACTIONS (9)
  - BLADDER DISCOMFORT [None]
  - BLADDER PAIN [None]
  - BLOOD SODIUM DECREASED [None]
  - FEELING ABNORMAL [None]
  - HAEMATURIA [None]
  - KIDNEY INFECTION [None]
  - MALAISE [None]
  - PYELONEPHRITIS [None]
  - RENAL IMPAIRMENT [None]
